APPROVED DRUG PRODUCT: PORTIA-21
Active Ingredient: ETHINYL ESTRADIOL; LEVONORGESTREL
Strength: 0.03MG;0.15MG
Dosage Form/Route: TABLET;ORAL-21
Application: A075866 | Product #001
Applicant: BARR LABORATORIES INC
Approved: May 23, 2002 | RLD: No | RS: No | Type: DISCN